FAERS Safety Report 8878843 (Version 1)
Quarter: 2012Q4

REPORT INFORMATION
  Report Type: 
  Country: US (occurrence: US)
  Receive Date: 20121026
  Receipt Date: 20121026
  Transmission Date: 20130627
  Serious: Yes (Hospitalization)
  Sender: FDA-Public Use
  Company Number: US-BAYER-2012-111861

PATIENT
  Age: 50 Year
  Sex: Female

DRUGS (11)
  1. YAZ [Suspect]
  2. VALTREX [Concomitant]
     Dosage: 500 mg, UNK
     Dates: start: 20080819
  3. FLUOXETINE [Concomitant]
     Dosage: 40 mg, UNK
     Dates: start: 20080912
  4. HYDROCODONE W/APAP [Concomitant]
     Dosage: 5-500mg
     Dates: start: 20080922
  5. IBUPROFEN [Concomitant]
     Dosage: 800 mg, UNK
     Dates: start: 20081014, end: 20090121
  6. DIOVAN [Concomitant]
  7. XOPENEX [Concomitant]
  8. CELEBREX [Concomitant]
  9. PROTONIX [Concomitant]
  10. MOTRIN [Concomitant]
  11. ADVAIR [Concomitant]

REACTIONS (2)
  - Pulmonary embolism [Recovering/Resolving]
  - Deep vein thrombosis [Recovering/Resolving]
